FAERS Safety Report 11913182 (Version 1)
Quarter: 2016Q1

REPORT INFORMATION
  Report Type: Spontaneous
  Country: FR (occurrence: FR)
  Receive Date: 20160113
  Receipt Date: 20160113
  Transmission Date: 20160526
  Serious: Yes (Other)
  Sender: FDA-Public Use
  Company Number: FR-CELGENE-056-20785-09021251

PATIENT
  Sex: Female

DRUGS (1)
  1. THALOMID [Suspect]
     Active Substance: THALIDOMIDE
     Indication: STILL^S DISEASE ADULT ONSET
     Dosage: 200 MILLIGRAM
     Route: 048

REACTIONS (2)
  - Influenza like illness [None]
  - Still^s disease adult onset [Unknown]
